FAERS Safety Report 7350522-9 (Version None)
Quarter: 2011Q1

REPORT INFORMATION
  Report Type: 
  Country: None (occurrence: None)
  Receive Date: 20110303
  Receipt Date: 20110222
  Transmission Date: 20110831
  Serious: Yes (Hospitalization)
  Sender: FDA-Public Use
  Company Number: 833884

PATIENT
  Age: 72 Year
  Sex: Male

DRUGS (4)
  1. (ZELITREX) [Concomitant]
  2. PENTOSTATIN [Suspect]
     Indication: NON-HODGKIN'S LYMPHOMA
     Dosage: 8 MG/M 2 MILLIGRAM(S)/SQ, METER INTRAVENOUS (NOT OTHERWISE SPECIFIED)
     Route: 042
     Dates: start: 20101123, end: 20101221
  3. BACTRIM [Concomitant]
  4. (ENDOXAN /00021102/) [Concomitant]

REACTIONS (2)
  - COOMBS DIRECT TEST POSITIVE [None]
  - ANAEMIA HAEMOLYTIC AUTOIMMUNE [None]
